FAERS Safety Report 25293051 (Version 1)
Quarter: 2025Q2

REPORT INFORMATION
  Report Type: Spontaneous
  Country: US (occurrence: US)
  Receive Date: 20250510
  Receipt Date: 20250510
  Transmission Date: 20250717
  Serious: No
  Sender: SANOFI AVENTIS
  Company Number: US-SA-2025SA127902

PATIENT
  Age: 70 Year

DRUGS (17)
  1. REZUROCK [Suspect]
     Active Substance: BELUMOSUDIL
     Indication: Chronic graft versus host disease
     Dosage: 200 MG, QD
     Route: 048
  2. ALBUTEROL SULFATE [Concomitant]
     Active Substance: ALBUTEROL SULFATE
  3. AZITHROMYCIN [Concomitant]
     Active Substance: AZITHROMYCIN
  4. MONTELUKAST SODIUM [Concomitant]
     Active Substance: MONTELUKAST SODIUM
  5. PREMARIN [Concomitant]
     Active Substance: ESTROGENS, CONJUGATED
  6. PEPCID [Concomitant]
     Active Substance: FAMOTIDINE
  7. TROLAMINE [Concomitant]
     Active Substance: TROLAMINE
  8. CLOBETASOL PROPIONATE [Concomitant]
     Active Substance: CLOBETASOL PROPIONATE
  9. LOTEMAX [Concomitant]
     Active Substance: LOTEPREDNOL ETABONATE
  10. PROBIOTICS NOS [Concomitant]
     Active Substance: PROBIOTICS NOS
  11. RESTASIS [Concomitant]
     Active Substance: CYCLOSPORINE
  12. SYMBICORT [Concomitant]
     Active Substance: BUDESONIDE\FORMOTEROL FUMARATE DIHYDRATE
  13. SYNTHROID [Concomitant]
     Active Substance: LEVOTHYROXINE SODIUM
  14. TIZANIDINE HYDROCHLORIDE [Concomitant]
     Active Substance: TIZANIDINE HYDROCHLORIDE
  15. VITAMIN D3 [Concomitant]
     Active Substance: CHOLECALCIFEROL
  16. XANAX [Concomitant]
     Active Substance: ALPRAZOLAM
  17. URSODIOL [Concomitant]
     Active Substance: URSODIOL

REACTIONS (3)
  - Eye irritation [Unknown]
  - Eye pruritus [Unknown]
  - Eye pain [Unknown]
